FAERS Safety Report 23433339 (Version 1)
Quarter: 2024Q1

REPORT INFORMATION
  Report Type: Spontaneous
  Country: US (occurrence: None)
  Receive Date: 20240123
  Receipt Date: 20240123
  Transmission Date: 20240410
  Serious: Yes (Other)
  Sender: FDA-Public Use
  Company Number: None

PATIENT
  Age: 31 Year
  Sex: Male

DRUGS (3)
  1. BIKTARVY [Suspect]
     Active Substance: BICTEGRAVIR SODIUM\EMTRICITABINE\TENOFOVIR ALAFENAMIDE FUMARATE
     Indication: HIV infection
     Dosage: FREQUENCY : DAILY;?
     Route: 048
     Dates: start: 20231003, end: 20240122
  2. Cephalexin 500mg Vapsules [Concomitant]
     Dates: start: 20231010, end: 20231020
  3. Clindamycin Phosphate !% topical solution [Concomitant]
     Dates: start: 20231010

REACTIONS (1)
  - Rash [None]

NARRATIVE: CASE EVENT DATE: 20231024
